FAERS Safety Report 24922828 (Version 1)
Quarter: 2025Q1

REPORT INFORMATION
  Report Type: Spontaneous
  Country: US (occurrence: US)
  Receive Date: 20250204
  Receipt Date: 20250204
  Transmission Date: 20250409
  Serious: Yes (Hospitalization)
  Sender: SANOFI AVENTIS
  Company Number: US-SA-2025SA032318

PATIENT
  Age: 13 Year
  Sex: Female

DRUGS (5)
  1. DUPIXENT [Suspect]
     Active Substance: DUPILUMAB
     Dosage: 300 MG, QOW
     Route: 058
  2. DUPIXENT [Suspect]
     Active Substance: DUPILUMAB
     Dates: start: 20250129
  3. GABAPENTIN [Concomitant]
     Active Substance: GABAPENTIN
  4. TYLENOL [Concomitant]
     Active Substance: ACETAMINOPHEN
  5. VITAMIN B COMPLEX COX [Concomitant]

REACTIONS (7)
  - Scoliosis [Unknown]
  - Abdominal pain upper [Unknown]
  - Vomiting [Unknown]
  - Productive cough [Unknown]
  - Odynophagia [Unknown]
  - Weight decreased [Unknown]
  - Inappropriate schedule of product administration [Unknown]
